FAERS Safety Report 7350003-2 (Version None)
Quarter: 2011Q1

REPORT INFORMATION
  Report Type: 
  Country: None (occurrence: None)
  Receive Date: 20110314
  Receipt Date: 20110310
  Transmission Date: 20110831
  Serious: Yes (Other)
  Sender: FDA-Public Use
  Company Number: GB-BRISTOL-MYERS SQUIBB COMPANY-15578727

PATIENT
  Age: 82 Year
  Sex: Female
  Weight: 54 kg

DRUGS (8)
  1. LEVOTHYROXINE [Concomitant]
     Indication: HYPOTHYROIDISM
     Route: 048
  2. CARDICOR [Concomitant]
     Route: 048
  3. BISOPROLOL FUMARATE [Concomitant]
  4. LACTULOSE [Concomitant]
     Indication: CONSTIPATION
     Route: 048
  5. ABILIFY [Suspect]
     Route: 048
     Dates: start: 20101201, end: 20110217
  6. PARACETAMOL [Concomitant]
     Indication: ARTHRITIS
     Dosage: 1 DF = 1 OR 2 TABS
  7. DOCUSATE [Concomitant]
     Indication: CONSTIPATION
     Route: 048
  8. SALBUTAMOL INHALER [Concomitant]
     Indication: ASTHMA
     Route: 055

REACTIONS (4)
  - BLISTER [None]
  - RASH [None]
  - ERYTHEMA MULTIFORME [None]
  - PRURITUS [None]
